FAERS Safety Report 5063043-3 (Version None)
Quarter: 2006Q3

REPORT INFORMATION
  Report Type: 
  Country: None (occurrence: None)
  Receive Date: 20060727
  Receipt Date: 20060717
  Transmission Date: 20061208
  Serious: Yes (Hospitalization)
  Sender: FDA-Public Use
  Company Number: GBWYE208317JUL06

PATIENT
  Sex: Female
  Weight: 74 kg

DRUGS (2)
  1. ENBREL [Suspect]
     Indication: RHEUMATOID ARTHRITIS
     Route: 058
     Dates: start: 20040803
  2. PREDNISOLONE [Concomitant]
     Dosage: UNKNOWN
     Route: 065

REACTIONS (1)
  - TUBERCULOSIS [None]
